FAERS Safety Report 4664593-1 (Version None)
Quarter: 2005Q2

REPORT INFORMATION
  Report Type: 
  Country: None (occurrence: None)
  Receive Date: 20050518
  Receipt Date: 20050512
  Transmission Date: 20051028
  Serious: Yes (Other)
  Sender: FDA-Public Use
  Company Number: 401954

PATIENT
  Age: 79 Year
  Sex: Male

DRUGS (1)
  1. CARVEDILOL [Suspect]
     Indication: DRUG USE FOR UNKNOWN INDICATION
     Dosage: 3.125MG PER DAY
     Route: 048
     Dates: start: 20050316

REACTIONS (4)
  - PSORIASIS [None]
  - RASH SCALY [None]
  - SKIN EXFOLIATION [None]
  - SKIN HAEMORRHAGE [None]
